FAERS Safety Report 14044592 (Version 2)
Quarter: 2017Q4

REPORT INFORMATION
  Report Type: Report from Study
  Country: US (occurrence: US)
  Receive Date: 20171004
  Receipt Date: 20171018
  Transmission Date: 20180321
  Serious: Yes (Other)
  Sender: FDA-Public Use
  Company Number: US-AMGEN-USASL2017138301

PATIENT
  Age: 71 Year
  Sex: Female
  Weight: 120 kg

DRUGS (7)
  1. FORTEO [Concomitant]
     Active Substance: TERIPARATIDE
     Indication: OSTEOPOROSIS
     Dosage: 20 MUG, QD
     Route: 058
  2. VITAMIN D [Concomitant]
     Active Substance: CHOLECALCIFEROL
     Dosage: 5000 UNK, QD
     Route: 048
     Dates: start: 20170201
  3. EYE DROPS [Concomitant]
     Active Substance: UNSPECIFIED INGREDIENT
     Dosage: UNK
  4. VITAMINS [Concomitant]
     Active Substance: VITAMINS
  5. ACTONEL [Concomitant]
     Active Substance: RISEDRONATE SODIUM
  6. PROLIA [Suspect]
     Active Substance: DENOSUMAB
     Indication: OSTEOPOROSIS POSTMENOPAUSAL
     Dosage: 60 ML, Q6MO
     Route: 058
     Dates: start: 20170228, end: 20170228
  7. TRIAMCINOLONE ACETONIDE. [Concomitant]
     Active Substance: TRIAMCINOLONE ACETONIDE
     Dosage: 1 %, TID

REACTIONS (6)
  - Swelling face [Recovering/Resolving]
  - Eczema [Recovering/Resolving]
  - Bone pain [Recovering/Resolving]
  - Muscle spasms [Recovering/Resolving]
  - Pain [Recovering/Resolving]
  - Arthralgia [Recovering/Resolving]

NARRATIVE: CASE EVENT DATE: 20170228
